FAERS Safety Report 11104502 (Version 3)
Quarter: 2015Q2

REPORT INFORMATION
  Report Type: Spontaneous
  Country: JP (occurrence: JP)
  Receive Date: 20150511
  Receipt Date: 20150605
  Transmission Date: 20150821
  Serious: Yes (Death)
  Sender: FDA-Public Use
  Company Number: PHJP2015JP007158

PATIENT
  Age: 89 Year
  Sex: Male

DRUGS (3)
  1. CARBAMAZEPINE. [Suspect]
     Active Substance: CARBAMAZEPINE
     Indication: TRIGEMINAL NEURALGIA
     Dosage: 200 MG, QD
     Route: 048
  2. IFENPRODIL [Suspect]
     Active Substance: IFENPRODIL
     Route: 065
     Dates: start: 201011
  3. IFENPRODIL [Suspect]
     Active Substance: IFENPRODIL
     Indication: TRIGEMINAL NEURALGIA
     Dosage: 120 MG, QD
     Route: 065
     Dates: start: 201001, end: 201009

REACTIONS (2)
  - Myelodysplastic syndrome [Fatal]
  - Drug ineffective [Unknown]
